FAERS Safety Report 7432684-8 (Version None)
Quarter: 2011Q2

REPORT INFORMATION
  Report Type: 
  Country: None (occurrence: None)
  Receive Date: 20110422
  Receipt Date: 20110420
  Transmission Date: 20111010
  Serious: Yes (Other)
  Sender: FDA-Public Use
  Company Number: A0923734A

PATIENT
  Age: 47 Year
  Sex: Female

DRUGS (1)
  1. ALLI [Suspect]
     Indication: WEIGHT LOSS DIET
     Route: 048
     Dates: start: 20101101

REACTIONS (8)
  - ELECTROCARDIOGRAM [None]
  - MYOCARDIAL INFARCTION [None]
  - ANXIETY [None]
  - CARDIAC STRESS TEST [None]
  - DYSPNOEA [None]
  - DRUG INEFFECTIVE [None]
  - FEELING ABNORMAL [None]
  - SUFFOCATION FEELING [None]
